FAERS Safety Report 24768948 (Version 7)
Quarter: 2025Q1

REPORT INFORMATION
  Report Type: Spontaneous
  Country: PL (occurrence: PL)
  Receive Date: 20241224
  Receipt Date: 20250210
  Transmission Date: 20250409
  Serious: Yes (Hospitalization, Other)
  Sender: Haleon PLC
  Company Number: PL-USP-ICSR-2024-02-08-09-34-42-48-49-79-86-96-102-107-128-129- 132_128

PATIENT
  Age: 36 Year
  Sex: Female

DRUGS (32)
  1. ACETAMINOPHEN [Suspect]
     Active Substance: ACETAMINOPHEN
     Indication: Toothache
  2. ACETAMINOPHEN [Suspect]
     Active Substance: ACETAMINOPHEN
     Indication: Gingival pain
  3. IBUPROFEN [Suspect]
     Active Substance: IBUPROFEN
     Indication: Toothache
  4. DOXYLAMINE [Suspect]
     Active Substance: DOXYLAMINE
     Indication: Insomnia
     Dosage: 25 MG AT NIGHT
  5. DOXYLAMINE [Suspect]
     Active Substance: DOXYLAMINE
     Indication: Sleep disorder
  6. DOXYLAMINE [Suspect]
     Active Substance: DOXYLAMINE
     Indication: Depression
  7. DICLOFENAC [Suspect]
     Active Substance: DICLOFENAC
     Indication: Toothache
     Route: 048
  8. DICLOFENAC [Suspect]
     Active Substance: DICLOFENAC
     Route: 061
  9. OXYCODONE [Suspect]
     Active Substance: OXYCODONE
     Indication: Toothache
     Route: 065
  10. OXYCODONE [Suspect]
     Active Substance: OXYCODONE
     Indication: Analgesic therapy
  11. ESCITALOPRAM [Interacting]
     Active Substance: ESCITALOPRAM OXALATE
     Indication: Depression
     Dosage: 10 MG AT NIGHT
  12. ESCITALOPRAM [Interacting]
     Active Substance: ESCITALOPRAM OXALATE
     Indication: Insomnia
  13. BUPRENORPHINE [Suspect]
     Active Substance: BUPRENORPHINE
     Indication: Toothache
     Route: 062
  14. BUPRENORPHINE [Suspect]
     Active Substance: BUPRENORPHINE
     Route: 050
  15. DIAZEPAM [Suspect]
     Active Substance: DIAZEPAM
     Indication: Toothache
  16. AMOXICILLIN [Suspect]
     Active Substance: AMOXICILLIN
     Indication: Toothache
  17. CLINDAMYCIN [Suspect]
     Active Substance: CLINDAMYCIN
     Indication: Toothache
  18. BENZYDAMINE [Suspect]
     Active Substance: BENZYDAMINE
     Indication: Toothache
     Route: 061
  19. FLURBIPROFEN [Suspect]
     Active Substance: FLURBIPROFEN
     Indication: Toothache
     Route: 061
  20. CHLORHEXIDINE [Suspect]
     Active Substance: CHLORHEXIDINE
     Indication: Toothache
     Route: 061
  21. LIDOCAINE HYDROCHLORIDE [Suspect]
     Active Substance: LIDOCAINE HYDROCHLORIDE
     Indication: Toothache
     Route: 061
  22. MORPHINE [Suspect]
     Active Substance: MORPHINE
     Indication: Toothache
     Route: 061
  23. ACETAMINOPHEN\CODEINE [Suspect]
     Active Substance: ACETAMINOPHEN\CODEINE
     Indication: Toothache
  24. METAMIZOLE [Suspect]
     Active Substance: METAMIZOLE
     Indication: Gingival pain
  25. METAMIZOLE [Suspect]
     Active Substance: METAMIZOLE
     Indication: Toothache
  26. TRAZODONE [Suspect]
     Active Substance: TRAZODONE HYDROCHLORIDE
     Indication: Pain
  27. CODEINE [Suspect]
     Active Substance: CODEINE
     Indication: Toothache
     Route: 065
  28. ETORICOXIB [Suspect]
     Active Substance: ETORICOXIB
     Indication: Pain
  29. PREGABALIN [Suspect]
     Active Substance: PREGABALIN
     Indication: Product used for unknown indication
  30. DULOXETINE [Suspect]
     Active Substance: DULOXETINE
     Indication: Pain
  31. IPIDACRINE [Concomitant]
     Active Substance: IPIDACRINE
     Indication: Product used for unknown indication
  32. KETOPROFEN [Suspect]
     Active Substance: KETOPROFEN
     Indication: Toothache

REACTIONS (8)
  - Hyperaesthesia [Recovered/Resolved]
  - Gingival pain [Recovering/Resolving]
  - Drug ineffective [Unknown]
  - Dry mouth [Unknown]
  - Toothache [Recovering/Resolving]
  - Somnolence [Unknown]
  - Drug interaction [Unknown]
  - Central pain syndrome [Recovered/Resolved]
